FAERS Safety Report 4300495-8 (Version None)
Quarter: 2004Q1

REPORT INFORMATION
  Report Type: 
  Country: None (occurrence: None)
  Receive Date: 20040218
  Receipt Date: 20040204
  Transmission Date: 20041129
  Serious: Yes (Other)
  Sender: FDA-Public Use
  Company Number: USA040258396

PATIENT
  Sex: Female

DRUGS (3)
  1. GEMZAR [Suspect]
     Indication: LUNG NEOPLASM MALIGNANT
  2. CARBOPLATIN [Concomitant]
  3. PLAVIX [Concomitant]

REACTIONS (2)
  - EXTREMITY NECROSIS [None]
  - RAYNAUD'S PHENOMENON [None]
